FAERS Safety Report 20587231 (Version 2)
Quarter: 2022Q1

REPORT INFORMATION
  Report Type: Spontaneous
  Country: US (occurrence: US)
  Receive Date: 20220314
  Receipt Date: 20220324
  Transmission Date: 20220423
  Serious: Yes (Other)
  Sender: FDA-Public Use
  Company Number: US-MLMSERVICE-20220216-3378146-1

PATIENT

DRUGS (10)
  1. GEMCITABINE [Suspect]
     Active Substance: GEMCITABINE
     Indication: Cholangiocarcinoma
     Dosage: 800 MG/M2 ON DAYS 1 AND 8 OF 21-DAY CYCLE
     Route: 065
  2. GEMCITABINE [Suspect]
     Active Substance: GEMCITABINE
     Dosage: 1600 MG/M2, 1 CYCLICAL
     Route: 065
     Dates: start: 201912
  3. GEMCITABINE [Suspect]
     Active Substance: GEMCITABINE
     Dosage: UNK, CYCLICAL
     Route: 065
     Dates: start: 202005
  4. GEMCITABINE [Suspect]
     Active Substance: GEMCITABINE
     Dosage: UNK, DOSE REDUCTIONS, CYCLICAL
     Route: 065
  5. CISPLATIN [Suspect]
     Active Substance: CISPLATIN
     Indication: Cholangiocarcinoma
     Dosage: 25 MG/M2 ON DAYS 1 AND 8 OF 21-DAY CYCLE
     Route: 065
  6. CISPLATIN [Suspect]
     Active Substance: CISPLATIN
     Dosage: 50 MG/M2, 1 CYCLICAL
     Route: 065
     Dates: start: 201912
  7. CISPLATIN [Suspect]
     Active Substance: CISPLATIN
     Dosage: UNK, DOSE REDUCTIONS, CYCLICAL
     Route: 065
     Dates: start: 202005
  8. PACLITAXEL [Suspect]
     Active Substance: PACLITAXEL
     Indication: Cholangiocarcinoma
     Dosage: 100 MG/M2 ON DAYS 1 AND 8 OF 21-DAY CYCLE
     Route: 065
  9. PACLITAXEL [Suspect]
     Active Substance: PACLITAXEL
     Dosage: 200 MG/M2, 1 CYCLICAL
     Route: 065
     Dates: start: 201912
  10. PACLITAXEL [Suspect]
     Active Substance: PACLITAXEL
     Dosage: UNK, DOSE REDUCTIONS
     Route: 065
     Dates: end: 202007

REACTIONS (3)
  - Toxicity to various agents [Recovered/Resolved]
  - Thrombocytopenia [Recovered/Resolved]
  - Fatigue [Recovered/Resolved]

NARRATIVE: CASE EVENT DATE: 20200311
